FAERS Safety Report 14379747 (Version 1)
Quarter: 2018Q1

REPORT INFORMATION
  Report Type: Spontaneous
  Country: US (occurrence: US)
  Receive Date: 20180112
  Receipt Date: 20180112
  Transmission Date: 20180509
  Serious: No
  Sender: FDA-Public Use
  Company Number: US-TEVA-2018-US-844085

PATIENT
  Age: 4 Year
  Sex: Male

DRUGS (2)
  1. QVAR [Suspect]
     Active Substance: BECLOMETHASONE DIPROPIONATE
     Dosage: DOSE STRENGTH:1%/0.05%, FREQUENCY : 1 PUFF TWICE A DAY
     Route: 065
  2. ALBUTEROL. [Concomitant]
     Active Substance: ALBUTEROL
     Indication: WHEEZING
     Route: 065

REACTIONS (3)
  - Wheezing [Unknown]
  - Product use issue [Unknown]
  - Dental caries [Unknown]
